FAERS Safety Report 8446629-5 (Version None)
Quarter: 2012Q2

REPORT INFORMATION
  Report Type: 
  Country: None (occurrence: None)
  Receive Date: 20120619
  Receipt Date: 20120607
  Transmission Date: 20120825
  Serious: Yes (Hospitalization)
  Sender: FDA-Public Use
  Company Number: US-BIOGENIDEC-2012BI018953

PATIENT
  Age: 32 Year
  Sex: Female

DRUGS (10)
  1. KEPPRA [Concomitant]
  2. LAMICTAL [Concomitant]
  3. AMITRIPTYLINE HCL [Concomitant]
  4. TYSABRI [Suspect]
     Indication: MULTIPLE SCLEROSIS
     Route: 042
     Dates: start: 20110107
  5. TOPAMAX [Concomitant]
  6. MAXALT [Concomitant]
  7. LYRICA [Concomitant]
  8. BACLOFEN [Concomitant]
  9. AMBIEN [Concomitant]
  10. KLONOPIN [Concomitant]

REACTIONS (1)
  - PARTIAL SEIZURES WITH SECONDARY GENERALISATION [None]
